FAERS Safety Report 20633409 (Version 1)
Quarter: 2022Q1

REPORT INFORMATION
  Report Type: Report from Study
  Country: US (occurrence: US)
  Receive Date: 20220324
  Receipt Date: 20220324
  Transmission Date: 20220423
  Serious: Yes (Other)
  Sender: FDA-Public Use
  Company Number: US-TEVA-2022-US-2018897

PATIENT
  Age: 70 Year
  Sex: Male

DRUGS (3)
  1. PACLITAXEL [Suspect]
     Active Substance: PACLITAXEL
     Indication: Adenocarcinoma pancreas
     Dosage: ON DAY 1, 8, 15 OF 28-DAY CYCLE
     Route: 065
  2. GEMCITABINE [Suspect]
     Active Substance: GEMCITABINE
     Indication: Adenocarcinoma pancreas
     Dosage: ON DAYS 1, 8, 15 OF 28-DAY CYCLE
     Route: 065
  3. NAPABUCASIN [Suspect]
     Active Substance: NAPABUCASIN
     Indication: Adenocarcinoma pancreas
     Dosage: 480 MILLIGRAM DAILY; CYCLICAL
     Route: 065

REACTIONS (4)
  - Cystoid macular oedema [Recovered/Resolved]
  - Neuropathy peripheral [Unknown]
  - Drug ineffective [Unknown]
  - Neutropenia [Unknown]
